FAERS Safety Report 15372174 (Version 1)
Quarter: 2018Q3

REPORT INFORMATION
  Report Type: Report from Study
  Country: US (occurrence: US)
  Receive Date: 20180911
  Receipt Date: 20180911
  Transmission Date: 20181010
  Serious: Yes (Hospitalization)
  Sender: FDA-Public Use
  Company Number: US-HLSUS-2018-US-000782

PATIENT
  Age: 26 Year
  Sex: Female
  Weight: 56.36 kg

DRUGS (1)
  1. CLOZARIL [Suspect]
     Active Substance: CLOZAPINE
     Indication: SCHIZOPHRENIA
     Dosage: 25MG
     Route: 048
     Dates: start: 20180809, end: 20180813

REACTIONS (11)
  - Hallucination, auditory [Unknown]
  - Speech disorder [Unknown]
  - Alanine aminotransferase increased [Unknown]
  - Loss of bladder sensation [Recovered/Resolved]
  - Hallucination [Unknown]
  - Sinus tachycardia [Unknown]
  - Aspartate aminotransferase increased [Unknown]
  - Seizure [Recovered/Resolved]
  - Sleep disorder [Unknown]
  - Electrocardiogram PR shortened [Unknown]
  - Muscle twitching [Unknown]

NARRATIVE: CASE EVENT DATE: 20180814
